FAERS Safety Report 8683436 (Version 2)
Quarter: 2013Q4

REPORT INFORMATION
  Report Type: Spontaneous
  Country: FR (occurrence: FR)
  Receive Date: 20120726
  Receipt Date: 20131105
  Transmission Date: 20140711
  Serious: Yes (Hospitalization)
  Sender: FDA-Public Use
  Company Number: FR-009507513-1207FRA004750

PATIENT
  Age: 21 Year
  Sex: Female

DRUGS (9)
  1. TIENAM 500MG/500MG, POUDRE POUR PERFUSION [Suspect]
     Dosage: UNK
     Route: 042
     Dates: start: 20110630, end: 20110713
  2. TAZOCILLINE [Concomitant]
     Dosage: UNK
     Route: 042
     Dates: start: 20110623
  3. TARGOCID [Suspect]
     Dosage: UNK
     Route: 042
     Dates: start: 20110630, end: 20110708
  4. CANCIDAS [Concomitant]
     Dosage: UNK
     Dates: start: 20110706, end: 20110706
  5. ZOVIRAX [Concomitant]
     Dosage: UNK
     Dates: start: 20110706, end: 20110726
  6. AMIKACIN [Suspect]
     Dosage: UNK
     Dates: start: 20110703, end: 20110707
  7. ESTREVA [Concomitant]
     Indication: PREMATURE MENOPAUSE
  8. UTROGESTAN [Concomitant]
     Indication: PREMATURE MENOPAUSE
  9. NOXAFIL [Concomitant]
     Dosage: UNK
     Dates: start: 20110620

REACTIONS (4)
  - Erythema [Recovered/Resolved]
  - Rash scarlatiniform [Recovered/Resolved]
  - Pruritus [Recovered/Resolved]
  - Oedema [Recovered/Resolved]
